FAERS Safety Report 7591030-X (Version None)
Quarter: 2011Q3

REPORT INFORMATION
  Report Type: 
  Country: None (occurrence: None)
  Receive Date: 20110705
  Receipt Date: 20110701
  Transmission Date: 20111222
  Serious: Yes (Life-Threatening, Hospitalization, Disabling, Other)
  Sender: FDA-Public Use
  Company Number: FR-PFIZER INC-2011000250

PATIENT
  Age: 65 Year
  Sex: Male
  Weight: 110 kg

DRUGS (6)
  1. BIPRETERAX [Concomitant]
     Indication: HYPERTENSION
     Dosage: 4 MG/1.25 MG  1X/DAY
     Route: 048
     Dates: start: 20020101
  2. FELDENE [Suspect]
     Indication: BACK PAIN
  3. NOCTAMID [Concomitant]
     Dosage: 1 MG, 1X/DAY
     Dates: start: 20020101
  4. FELDENE [Suspect]
     Indication: OSTEOARTHRITIS
     Dosage: 20 MG, 1X/DAY
     Route: 048
     Dates: start: 20101205, end: 20101206
  5. LORAZEPAM [Concomitant]
     Indication: HYPERTENSION
     Dosage: 1 MG, 1X/DAY
     Route: 048
     Dates: start: 20020101
  6. NOCTRAN 10 [Concomitant]
     Indication: HYPERTENSION
     Dosage: 10 MG, 1X/DAY

REACTIONS (20)
  - LOSS OF CONSCIOUSNESS [None]
  - ANGINA PECTORIS [None]
  - SHOCK [None]
  - PANCYTOPENIA [None]
  - RETICULOCYTE COUNT DECREASED [None]
  - PSYCHOTIC DISORDER [None]
  - HAEMATOMA [None]
  - SYNCOPE [None]
  - FALL [None]
  - TOXICITY TO VARIOUS AGENTS [None]
  - BONE MARROW FAILURE [None]
  - HEPATIC CIRRHOSIS [None]
  - GASTROINTESTINAL HAEMORRHAGE [None]
  - MENTAL DISORDER [None]
  - MALAISE [None]
  - HYPERSPLENISM [None]
  - HEPATIC STEATOSIS [None]
  - ANXIETY [None]
  - LIVER INJURY [None]
  - MELAENA [None]
